FAERS Safety Report 19481957 (Version 1)
Quarter: 2021Q2

REPORT INFORMATION
  Report Type: Spontaneous
  Country: US (occurrence: US)
  Receive Date: 20210630
  Receipt Date: 20210630
  Transmission Date: 20210717
  Serious: Yes (Hospitalization)
  Sender: FDA-Public Use
  Company Number: None

PATIENT
  Age: 58 Year
  Sex: Female

DRUGS (16)
  1. BUSPIRONE [Concomitant]
     Active Substance: BUSPIRONE HYDROCHLORIDE
  2. DALFAMPRIDINE. [Suspect]
     Active Substance: DALFAMPRIDINE
     Indication: MULTIPLE SCLEROSIS
     Dosage: OTHER FREQUENCY:EVERY 12 HOURS;?
     Route: 048
     Dates: start: 20201223
  3. DULOXETINE. [Concomitant]
     Active Substance: DULOXETINE
  4. MONTELUKAST [Concomitant]
     Active Substance: MONTELUKAST SODIUM
  5. IBUPROFEN. [Concomitant]
     Active Substance: IBUPROFEN
  6. BACLOFEN. [Concomitant]
     Active Substance: BACLOFEN
  7. FAMOTIDINE. [Concomitant]
     Active Substance: FAMOTIDINE
  8. FLUTICASONE. [Concomitant]
     Active Substance: FLUTICASONE
  9. LOSARTAN POTASSIUM. [Concomitant]
     Active Substance: LOSARTAN POTASSIUM
  10. PANTOPRAZOLE [Concomitant]
     Active Substance: PANTOPRAZOLE
  11. MODAFINIL. [Concomitant]
     Active Substance: MODAFINIL
  12. ESTRADIOL. [Concomitant]
     Active Substance: ESTRADIOL
  13. EZFE [Concomitant]
  14. ESTRADIOL. [Concomitant]
     Active Substance: ESTRADIOL
  15. FAMOTIDINE. [Concomitant]
     Active Substance: FAMOTIDINE
  16. BUPROPION. [Concomitant]
     Active Substance: BUPROPION

REACTIONS (5)
  - Sternal fracture [None]
  - Musculoskeletal stiffness [None]
  - Bladder disorder [None]
  - Mobility decreased [None]
  - Fall [None]

NARRATIVE: CASE EVENT DATE: 20210622
